FAERS Safety Report 4956618-0 (Version None)
Quarter: 2006Q1

REPORT INFORMATION
  Report Type: 
  Country: None (occurrence: None)
  Receive Date: 20060329
  Receipt Date: 20060320
  Transmission Date: 20060701
  Serious: Yes (Other)
  Sender: FDA-Public Use
  Company Number: US-MERCK-0603USA03160

PATIENT
  Age: 79 Year
  Sex: Female

DRUGS (3)
  1. ZETIA [Suspect]
     Indication: BLOOD CHOLESTEROL
     Route: 048
     Dates: start: 20050101, end: 20060101
  2. LOPRESSOR [Concomitant]
     Route: 065
  3. VALIUM [Concomitant]
     Route: 065

REACTIONS (4)
  - OCULAR VASCULAR DISORDER [None]
  - PAIN IN EXTREMITY [None]
  - RETINAL VASCULAR OCCLUSION [None]
  - TONGUE PARALYSIS [None]
